FAERS Safety Report 12966447 (Version 1)
Quarter: 2016Q4

REPORT INFORMATION
  Report Type: Spontaneous
  Country: US (occurrence: US)
  Receive Date: 20161118
  Receipt Date: 20161118
  Transmission Date: 20170207
  Serious: No
  Sender: FDA-Public Use
  Company Number: None

PATIENT
  Age: 56 Year
  Sex: Female

DRUGS (1)
  1. IBRANCE [Suspect]
     Active Substance: PALBOCICLIB
     Indication: BREAST CANCER
     Route: 048
     Dates: start: 20160928

REACTIONS (4)
  - Fatigue [None]
  - Epistaxis [None]
  - Red blood cell count decreased [None]
  - White blood cell count decreased [None]

NARRATIVE: CASE EVENT DATE: 20161104
